FAERS Safety Report 23051348 (Version 1)
Quarter: 2023Q4

REPORT INFORMATION
  Report Type: Spontaneous
  Country: US (occurrence: US)
  Receive Date: 20231010
  Receipt Date: 20231010
  Transmission Date: 20240110
  Serious: Yes (Other)
  Sender: FDA-Public Use
  Company Number: US-ANIPHARMA-2023-US-026059

PATIENT
  Age: 50 Year
  Sex: Female

DRUGS (26)
  1. CORTICOTROPIN [Suspect]
     Active Substance: CORTICOTROPIN
     Indication: Systemic lupus erythematosus
     Dosage: INJECT 80 UNITS (1ML) SUBCUTANEOUSLY TWO TIMES PER WEEK / 5 DAYS A WEEK
     Route: 058
  2. PREDNISONE [Concomitant]
     Active Substance: PREDNISONE
     Route: 065
  3. METOPROLOL SUCCINATE [Concomitant]
     Active Substance: METOPROLOL SUCCINATE
     Route: 065
  4. ONDANSETRON HYDROCHLORIDE [Concomitant]
     Active Substance: ONDANSETRON HYDROCHLORIDE
     Route: 065
  5. BENLYSTA [Suspect]
     Active Substance: BELIMUMAB
     Route: 065
  6. DULERA [Concomitant]
     Active Substance: FORMOTEROL FUMARATE DIHYDRATE\MOMETASONE FUROATE
     Route: 065
  7. FEXOFENADINE HYDROCHLORID [Concomitant]
     Route: 065
  8. MONTELUKAST SODIUM NDC 55111072560 [Concomitant]
     Route: 065
  9. LOSARTAN POTASSIUM [Concomitant]
     Active Substance: LOSARTAN POTASSIUM
     Route: 065
  10. ALBUTEROL SULFATE [Concomitant]
     Active Substance: ALBUTEROL SULFATE
     Route: 065
  11. PREDNISOLONE [Concomitant]
     Active Substance: PREDNISOLONE
     Route: 065
  12. PENNSAID [Concomitant]
     Active Substance: DICLOFENAC SODIUM
     Route: 065
  13. COLCHICINE [Concomitant]
     Active Substance: COLCHICINE
     Route: 065
  14. MOBIC [Suspect]
     Active Substance: MELOXICAM
     Route: 065
  15. ALBUTEROL SULFATE [Concomitant]
     Active Substance: ALBUTEROL SULFATE
     Route: 065
  16. TYLENOL EXTRA STRENGTH [Concomitant]
     Active Substance: ACETAMINOPHEN
     Route: 065
  17. WEGOVY [Concomitant]
     Active Substance: SEMAGLUTIDE
     Route: 065
  18. LATANOPROST [Concomitant]
     Active Substance: LATANOPROST
     Route: 065
  19. ARNUITY ELLIPTA [Concomitant]
     Active Substance: FLUTICASONE FUROATE
     Route: 065
  20. FOLIC ACID [Concomitant]
     Active Substance: FOLIC ACID
     Route: 065
  21. TRIAMCINOLONE ACETONIDE NDC 00168000215 [Concomitant]
     Route: 065
  22. METHOTREXATE NDC 00054455015 [Concomitant]
     Route: 065
  23. DICLOFENAC SODIUM [Concomitant]
     Active Substance: DICLOFENAC\DICLOFENAC SODIUM
     Route: 065
  24. OMEPRAZOLE NDC 00093521110 [Concomitant]
     Route: 065
  25. LEUCOVORIN CALCIUM NDC 00054449613 [Concomitant]
     Route: 065
  26. FLUCONAZOLE [Concomitant]
     Active Substance: FLUCONAZOLE
     Route: 065

REACTIONS (10)
  - Peripheral swelling [Unknown]
  - Migraine [Unknown]
  - Pain in extremity [Unknown]
  - Constipation [Unknown]
  - Irritable bowel syndrome [Unknown]
  - Dyspepsia [Unknown]
  - Injection site erythema [Recovered/Resolved]
  - Stress [Unknown]
  - Drug ineffective [Not Recovered/Not Resolved]
  - Rheumatoid arthritis [Unknown]
